FAERS Safety Report 5143748-6 (Version None)
Quarter: 2006Q4

REPORT INFORMATION
  Report Type: 
  Country: None (occurrence: None)
  Receive Date: 20061106
  Receipt Date: 20061030
  Transmission Date: 20070319
  Serious: Yes (Other)
  Sender: FDA-Public Use
  Company Number: JP-BAYER-200615087GDS

PATIENT
  Age: 68 Year
  Sex: Female

DRUGS (6)
  1. ADALAT [Suspect]
     Indication: HYPERTENSION
     Route: 048
  2. HALCION [Suspect]
     Indication: INSOMNIA
     Route: 048
  3. ANTIHYPERTENSIVES [Concomitant]
     Indication: HYPERTENSION
     Route: 065
  4. SELBEX [Concomitant]
     Indication: ABDOMINAL PAIN UPPER
     Route: 065
  5. FAMOTIDINE [Concomitant]
     Indication: ABDOMINAL PAIN UPPER
     Route: 065
  6. BUSCOPAN [Concomitant]
     Indication: ABDOMINAL PAIN UPPER
     Route: 065

REACTIONS (4)
  - DRUG EFFECT DECREASED [None]
  - GINGIVAL PAIN [None]
  - HYPERTENSION [None]
  - INSOMNIA [None]
